FAERS Safety Report 21096726 (Version 1)
Quarter: 2022Q3

REPORT INFORMATION
  Report Type: Spontaneous
  Country: CN (occurrence: CN)
  Receive Date: 20220718
  Receipt Date: 20220718
  Transmission Date: 20221026
  Serious: Yes (Other)
  Sender: FDA-Public Use
  Company Number: CN-Eisai Medical Research-EC-2022-118869

PATIENT
  Age: 22 Year
  Sex: Male
  Weight: 74 kg

DRUGS (4)
  1. RABEPRAZOLE SODIUM [Suspect]
     Active Substance: RABEPRAZOLE SODIUM
     Indication: Helicobacter gastritis
     Route: 048
     Dates: start: 20220703, end: 20220705
  2. CLARITHROMYCIN [Suspect]
     Active Substance: CLARITHROMYCIN
     Indication: Helicobacter gastritis
     Route: 048
     Dates: start: 20220703, end: 20220705
  3. TINIDAZOLE [Suspect]
     Active Substance: TINIDAZOLE
     Indication: Helicobacter gastritis
     Route: 048
     Dates: start: 20220703, end: 20220705
  4. BISMUTH SUBCITRATE [Suspect]
     Active Substance: BISMUTH SUBCITRATE
     Indication: Helicobacter gastritis
     Route: 048
     Dates: start: 20220703, end: 20220705

REACTIONS (1)
  - Diarrhoea [Recovered/Resolved]

NARRATIVE: CASE EVENT DATE: 20220703
